FAERS Safety Report 5468147-9 (Version None)
Quarter: 2007Q3

REPORT INFORMATION
  Report Type: 
  Country: None (occurrence: None)
  Receive Date: 20070924
  Receipt Date: 20070912
  Transmission Date: 20080115
  Serious: Yes (Hospitalization)
  Sender: FDA-Public Use
  Company Number: ERP07000026

PATIENT
  Age: 65 Year
  Sex: Male

DRUGS (3)
  1. ACTONEL [Suspect]
     Indication: PROSTATE CANCER
     Dosage: 30 MG, DAILY, ORAL
     Route: 048
     Dates: start: 20061120
  2. DOCETAXEL [Concomitant]
  3. PREDNISON (PREDNISONE) [Concomitant]

REACTIONS (2)
  - NEPHROLITHIASIS [None]
  - PAIN [None]
